FAERS Safety Report 20608925 (Version 1)
Quarter: 2022Q1

REPORT INFORMATION
  Report Type: Report from Study
  Country: IT (occurrence: IT)
  Receive Date: 20220317
  Receipt Date: 20220317
  Transmission Date: 20220423
  Serious: Yes (Other)
  Sender: FDA-Public Use
  Company Number: IT-GILEAD-2022-0572356

PATIENT
  Sex: Female
  Weight: 58 kg

DRUGS (2)
  1. SACITUZUMAB GOVITECAN [Suspect]
     Active Substance: SACITUZUMAB GOVITECAN
     Indication: Triple negative breast cancer
     Dosage: 1 DOSAGE FORM; DAY 1 AND 8 OF EACH CYCLE
     Route: 065
     Dates: start: 20220128
  2. SACITUZUMAB GOVITECAN [Suspect]
     Active Substance: SACITUZUMAB GOVITECAN
     Dosage: 1 DOSAGE FORM; REDUCED DOSE; DAY 1 AND 8 OF EACH CYCLE
     Route: 042

REACTIONS (2)
  - Blood bilirubin increased [Recovered/Resolved]
  - Haematotoxicity [Recovered/Resolved]

NARRATIVE: CASE EVENT DATE: 20220128
